FAERS Safety Report 24319133 (Version 2)
Quarter: 2024Q4

REPORT INFORMATION
  Report Type: Spontaneous
  Country: BR (occurrence: BR)
  Receive Date: 20240913
  Receipt Date: 20241120
  Transmission Date: 20250114
  Serious: Yes (Other)
  Sender: BIOMARIN
  Company Number: BR-SANOFI-02207161

PATIENT

DRUGS (5)
  1. ALDURAZYME [Suspect]
     Active Substance: LARONIDASE
     Indication: Mucopolysaccharidosis I
     Dosage: UNK
     Route: 065
  2. CLORIDRATO DE DORZOLAMIDA [Concomitant]
     Indication: Product used for unknown indication
  3. ENALAPRIL MALEATE [Concomitant]
     Active Substance: ENALAPRIL MALEATE
     Indication: Product used for unknown indication
  4. LATANOPROST [Concomitant]
     Active Substance: LATANOPROST
     Indication: Product used for unknown indication
  5. CARVEDILOL [Concomitant]
     Active Substance: CARVEDILOL
     Indication: Product used for unknown indication

REACTIONS (12)
  - Hydrocephalus [Unknown]
  - Cardiomyopathy [Unknown]
  - Brain abscess [Not Recovered/Not Resolved]
  - Shunt occlusion [Not Recovered/Not Resolved]
  - Blindness [Not Recovered/Not Resolved]
  - Motor developmental delay [Unknown]
  - Hypertension [Not Recovered/Not Resolved]
  - Bacterial infection [Recovered/Resolved]
  - Mobility decreased [Not Recovered/Not Resolved]
  - Weight decreased [Not Recovered/Not Resolved]
  - Decreased appetite [Not Recovered/Not Resolved]
  - Nausea [Not Recovered/Not Resolved]

NARRATIVE: CASE EVENT DATE: 20240701
